FAERS Safety Report 8844361 (Version 1)
Quarter: 2012Q4

REPORT INFORMATION
  Report Type: 
  Country: US (occurrence: US)
  Receive Date: 20121017
  Receipt Date: 20121017
  Transmission Date: 20130627
  Serious: Yes (Hospitalization, Disabling, Other)
  Sender: FDA-Public Use
  Company Number: US-SANOFI-AVENTIS-2012SA075157

PATIENT
  Sex: Female

DRUGS (5)
  1. SOLOSTAR [Suspect]
  2. SOLOSTAR [Suspect]
  3. APIDRA SOLOSTAR [Suspect]
     Dosage: SLIDING SCALE UP TO 10 UNITS DEPENDING ON BLOOD SUGAR
     Route: 058
  4. LANTUS SOLOSTAR [Suspect]
     Dosage: DAILY DOSE RANGE 32-42 UNITS DEPENDING UPON BLOOD SUGAR
     Route: 058
  5. WELLBUTRIN [Concomitant]
     Route: 065

REACTIONS (10)
  - Cataract [Unknown]
  - Visual impairment [Unknown]
  - Disability [Not Recovered/Not Resolved]
  - Sinusitis [Unknown]
  - Blood glucose decreased [Unknown]
  - Hypoglycaemia [Unknown]
  - Wrong drug administered [Unknown]
  - Mental disorder [Unknown]
  - Hypertension [Not Recovered/Not Resolved]
  - Inappropriate schedule of drug administration [Unknown]
